FAERS Safety Report 16802001 (Version 2)
Quarter: 2019Q3

REPORT INFORMATION
  Report Type: Report from Study
  Country: EG (occurrence: EG)
  Receive Date: 20190912
  Receipt Date: 20190923
  Transmission Date: 20191005
  Serious: Yes (Other)
  Sender: FDA-Public Use
  Company Number: PHHY2019EG212950

PATIENT
  Age: 44 Year
  Sex: Female

DRUGS (3)
  1. KISQALI [Suspect]
     Active Substance: RIBOCICLIB
     Indication: BREAST CANCER
     Dosage: 3 DF, QD
     Route: 048
     Dates: start: 20190706
  2. KISQALI [Suspect]
     Active Substance: RIBOCICLIB
     Indication: METASTASES TO BONE
  3. FEMARA [Concomitant]
     Active Substance: LETROZOLE
     Indication: PRODUCT USED FOR UNKNOWN INDICATION
     Dosage: 1 DF, QD
     Route: 065
     Dates: start: 20190706

REACTIONS (1)
  - Immunodeficiency [Not Recovered/Not Resolved]

NARRATIVE: CASE EVENT DATE: 20190901
